FAERS Safety Report 18407959 (Version 1)
Quarter: 2020Q4

REPORT INFORMATION
  Report Type: Spontaneous
  Country: JP (occurrence: JP)
  Receive Date: 20201020
  Receipt Date: 20201020
  Transmission Date: 20210114
  Serious: Yes (Hospitalization)
  Sender: FDA-Public Use
  Company Number: JP-ASTRAZENECA-2020SF33743

PATIENT
  Age: 78 Year

DRUGS (3)
  1. IMFINZI [Suspect]
     Active Substance: DURVALUMAB
     Indication: SMALL CELL LUNG CANCER
     Route: 041
  2. ETOPOSIDE. [Suspect]
     Active Substance: ETOPOSIDE
     Indication: SMALL CELL LUNG CANCER
     Dosage: UNKNOWN DOSE, EVERY THREE WEEKS
     Route: 065
  3. CARBOPLATIN. [Suspect]
     Active Substance: CARBOPLATIN
     Indication: SMALL CELL LUNG CANCER
     Dosage: UNKNOWN DOSE, EVERY THREE WEEKS
     Route: 065

REACTIONS (1)
  - Neutrophil count decreased [Unknown]
